FAERS Safety Report 4855626-8 (Version None)
Quarter: 2005Q4

REPORT INFORMATION
  Report Type: 
  Country: None (occurrence: None)
  Receive Date: 20051214
  Receipt Date: 20051129
  Transmission Date: 20060501
  Serious: Yes (Other)
  Sender: FDA-Public Use
  Company Number: DE200511002086

PATIENT
  Age: 60 Year
  Sex: Female
  Weight: 82 kg

DRUGS (6)
  1. YENTREVE (DULOXETINE HYDROCHLORIDE) CAPSULE [Suspect]
     Indication: STRESS INCONTINENCE
     Dosage: SEE IMAGE
     Route: 048
     Dates: start: 20050515, end: 20050522
  2. YENTREVE (DULOXETINE HYDROCHLORIDE) CAPSULE [Suspect]
     Indication: STRESS INCONTINENCE
     Dosage: SEE IMAGE
     Route: 048
     Dates: start: 20050523, end: 20050601
  3. ATACAND D (CANDESARTAN CILEXETIL, HYDROCHLOROTHIAZIDE) [Concomitant]
  4. NORVASC  /DEN/ (AMLODIPINE BESILATE) [Concomitant]
  5. TOREM /GFR/(TORASEMIDE) [Concomitant]
  6. BELOC-ZOC MITE (METOPROLOL SUCCINATE) [Concomitant]

REACTIONS (15)
  - ABDOMINAL DISCOMFORT [None]
  - BLOOD CHOLESTEROL INCREASED [None]
  - BODY TEMPERATURE INCREASED [None]
  - C-REACTIVE PROTEIN INCREASED [None]
  - CIRCULATORY COLLAPSE [None]
  - CONSTIPATION [None]
  - DEPRESSIVE SYMPTOM [None]
  - ELEVATED MOOD [None]
  - GASTROINTESTINAL DISORDER [None]
  - HAEMATOCRIT DECREASED [None]
  - HEADACHE [None]
  - NAUSEA [None]
  - RED BLOOD CELL COUNT DECREASED [None]
  - SUDDEN HEARING LOSS [None]
  - WHITE BLOOD CELL COUNT INCREASED [None]
